FAERS Safety Report 24775389 (Version 1)
Quarter: 2024Q4

REPORT INFORMATION
  Report Type: Spontaneous
  Country: AU (occurrence: AU)
  Receive Date: 20241226
  Receipt Date: 20241226
  Transmission Date: 20250115
  Serious: Yes (Other)
  Sender: BAXTER
  Company Number: AU-BAXTER-2024BAX028833

PATIENT
  Age: 28 Year
  Sex: Female

DRUGS (2)
  1. SODIUM CHLORIDE [Suspect]
     Active Substance: SODIUM CHLORIDE
     Indication: Medication dilution
     Dosage: AT AN UNSPECIFIED DOSE AND FREQUENCY, (START TIME: 10:15, STOP TIME: 10:18)
     Route: 042
     Dates: start: 20241128, end: 20241128
  2. DOXORUBICIN [Suspect]
     Active Substance: DOXORUBICIN
     Dosage: 95 MG, AT AN UNSPECIFIED FREQUENCY, (START TIME: 10:15, STOP TIME: 10:18)
     Route: 042
     Dates: start: 20241128, end: 20241128

REACTIONS (1)
  - Infusion related reaction [Unknown]

NARRATIVE: CASE EVENT DATE: 20241129
